FAERS Safety Report 9150917 (Version 1)
Quarter: 2013Q1

REPORT INFORMATION
  Report Type: Spontaneous
  Country: US (occurrence: US)
  Receive Date: 20130308
  Receipt Date: 20130308
  Transmission Date: 20140127
  Serious: No
  Sender: FDA-Public Use
  Company Number: US-GLAXOSMITHKLINE-A0966508A

PATIENT
  Age: 72 Year
  Sex: Male

DRUGS (3)
  1. NICORETTE MINT [Suspect]
     Indication: EX-TOBACCO USER
  2. NICORETTE FRESH MINT [Suspect]
     Indication: EX-TOBACCO USER
  3. NICORETTE MINT [Suspect]
     Indication: EX-TOBACCO USER
     Dates: start: 2011

REACTIONS (5)
  - Nicotine dependence [Not Recovered/Not Resolved]
  - Salivary hypersecretion [Recovered/Resolved]
  - Dizziness [Recovered/Resolved]
  - Feeling abnormal [Recovered/Resolved]
  - Intentional drug misuse [Not Recovered/Not Resolved]
